FAERS Safety Report 23919457 (Version 1)
Quarter: 2024Q2

REPORT INFORMATION
  Report Type: Spontaneous
  Country: US (occurrence: None)
  Receive Date: 20240529
  Receipt Date: 20240529
  Transmission Date: 20240716
  Serious: Yes (Other)
  Sender: FDA-Public Use
  Company Number: None

PATIENT
  Age: 81 Year
  Sex: Female
  Weight: 74.25 kg

DRUGS (1)
  1. TEPEZZA [Suspect]
     Active Substance: TEPROTUMUMAB-TRBW
     Indication: Toxic goitre
     Dosage: 1500 MG EVERY 3 WEEKS INTRAVENOUS
     Route: 042
     Dates: start: 20240509

REACTIONS (3)
  - Headache [None]
  - Muscle spasms [None]
  - Therapy interrupted [None]

NARRATIVE: CASE EVENT DATE: 20240509
